FAERS Safety Report 24409495 (Version 2)
Quarter: 2024Q4

REPORT INFORMATION
  Report Type: Report from Study
  Country: KR (occurrence: KR)
  Receive Date: 20241008
  Receipt Date: 20241122
  Transmission Date: 20250115
  Serious: Yes (Other)
  Sender: ALEXION PHARMACEUTICALS
  Company Number: KR-AstraZeneca-2024A155001

PATIENT
  Age: 79 Year
  Weight: 57 kg

DRUGS (60)
  1. DURVALUMAB [Suspect]
     Active Substance: DURVALUMAB
     Indication: Non-small cell lung cancer
     Dosage: 568 MILLIGRAM, UNK
  2. DURVALUMAB [Suspect]
     Active Substance: DURVALUMAB
     Dosage: 568 MILLIGRAM, UNK
  3. DURVALUMAB [Suspect]
     Active Substance: DURVALUMAB
     Dosage: 568 MILLIGRAM, UNK
  4. DURVALUMAB [Suspect]
     Active Substance: DURVALUMAB
     Dosage: 568 MILLIGRAM, UNK
  5. DURVALUMAB [Suspect]
     Active Substance: DURVALUMAB
     Dosage: 568 MILLIGRAM, UNK
  6. DURVALUMAB [Suspect]
     Active Substance: DURVALUMAB
     Dosage: 568 MILLIGRAM, UNK
  7. DURVALUMAB [Suspect]
     Active Substance: DURVALUMAB
     Dosage: 568 MILLIGRAM, UNK
  8. DURVALUMAB [Suspect]
     Active Substance: DURVALUMAB
     Dosage: 568 MILLIGRAM, UNK
  9. DURVALUMAB [Suspect]
     Active Substance: DURVALUMAB
     Dosage: 568 MILLIGRAM, UNK
  10. DURVALUMAB [Suspect]
     Active Substance: DURVALUMAB
     Dosage: 568 MILLIGRAM, UNK
  11. DURVALUMAB [Suspect]
     Active Substance: DURVALUMAB
     Dosage: 568 MILLIGRAM, UNK
  12. DURVALUMAB [Suspect]
     Active Substance: DURVALUMAB
     Dosage: 568 MILLIGRAM, UNK
  13. DURVALUMAB [Suspect]
     Active Substance: DURVALUMAB
     Dosage: 568 MILLIGRAM, UNK
  14. DURVALUMAB [Suspect]
     Active Substance: DURVALUMAB
     Dosage: 568 MILLIGRAM, UNK
  15. DURVALUMAB [Suspect]
     Active Substance: DURVALUMAB
     Dosage: 568 MILLIGRAM, UNK
  16. DURVALUMAB [Suspect]
     Active Substance: DURVALUMAB
     Dosage: 568 MILLIGRAM, UNK
  17. DURVALUMAB [Suspect]
     Active Substance: DURVALUMAB
     Dosage: 568 MILLIGRAM, UNK
  18. DURVALUMAB [Suspect]
     Active Substance: DURVALUMAB
     Dosage: 568 MILLIGRAM, UNK
  19. DURVALUMAB [Suspect]
     Active Substance: DURVALUMAB
     Dosage: 568 MILLIGRAM, UNK
  20. DURVALUMAB [Suspect]
     Active Substance: DURVALUMAB
     Dosage: 568 MILLIGRAM, UNK
  21. DURVALUMAB [Suspect]
     Active Substance: DURVALUMAB
     Dosage: 568 MILLIGRAM, UNK
  22. DURVALUMAB [Suspect]
     Active Substance: DURVALUMAB
     Dosage: 568 MILLIGRAM, UNK
  23. DURVALUMAB [Suspect]
     Active Substance: DURVALUMAB
     Dosage: 568 MILLIGRAM, UNK
  24. DURVALUMAB [Suspect]
     Active Substance: DURVALUMAB
     Dosage: 568 MILLIGRAM, UNK
  25. DURVALUMAB [Suspect]
     Active Substance: DURVALUMAB
     Dosage: 568 MILLIGRAM, UNK
  26. DURVALUMAB [Suspect]
     Active Substance: DURVALUMAB
     Dosage: 568 MILLIGRAM, UNK
  27. DURVALUMAB [Suspect]
     Active Substance: DURVALUMAB
     Dosage: 568 MILLIGRAM, UNK
  28. DURVALUMAB [Suspect]
     Active Substance: DURVALUMAB
     Dosage: 568 MILLIGRAM, UNK
  29. DURVALUMAB [Suspect]
     Active Substance: DURVALUMAB
     Dosage: 568 MILLIGRAM, UNK
  30. DURVALUMAB [Suspect]
     Active Substance: DURVALUMAB
     Dosage: 568 MILLIGRAM, UNK
  31. DURVALUMAB [Suspect]
     Active Substance: DURVALUMAB
     Dosage: 568 MILLIGRAM, UNK
  32. DURVALUMAB [Suspect]
     Active Substance: DURVALUMAB
     Dosage: 568 MILLIGRAM, UNK
  33. DURVALUMAB [Suspect]
     Active Substance: DURVALUMAB
     Dosage: 568 MILLIGRAM, UNK
  34. DURVALUMAB [Suspect]
     Active Substance: DURVALUMAB
     Dosage: 568 MILLIGRAM, UNK
  35. DURVALUMAB [Suspect]
     Active Substance: DURVALUMAB
     Dosage: 568 MILLIGRAM, UNK
  36. DURVALUMAB [Suspect]
     Active Substance: DURVALUMAB
     Dosage: 568 MILLIGRAM, UNK
  37. DURVALUMAB [Suspect]
     Active Substance: DURVALUMAB
     Dosage: 568 MILLIGRAM, UNK
  38. DURVALUMAB [Suspect]
     Active Substance: DURVALUMAB
     Dosage: 568 MILLIGRAM, UNK
  39. DURVALUMAB [Suspect]
     Active Substance: DURVALUMAB
     Dosage: 568 MILLIGRAM, UNK
  40. DURVALUMAB [Suspect]
     Active Substance: DURVALUMAB
     Dosage: 568 MILLIGRAM, UNK
  41. DURVALUMAB [Suspect]
     Active Substance: DURVALUMAB
     Dosage: 568 MILLIGRAM, UNK
  42. DURVALUMAB [Suspect]
     Active Substance: DURVALUMAB
     Dosage: 568 MILLIGRAM, UNK
  43. DURVALUMAB [Suspect]
     Active Substance: DURVALUMAB
     Dosage: 568 MILLIGRAM, UNK
  44. DURVALUMAB [Suspect]
     Active Substance: DURVALUMAB
     Dosage: 568 MILLIGRAM, UNK
  45. DURVALUMAB [Suspect]
     Active Substance: DURVALUMAB
     Dosage: 568 MILLIGRAM, UNK
  46. DURVALUMAB [Suspect]
     Active Substance: DURVALUMAB
     Dosage: 568 MILLIGRAM, UNK
  47. DURVALUMAB [Suspect]
     Active Substance: DURVALUMAB
     Dosage: 568 MILLIGRAM, UNK
  48. DURVALUMAB [Suspect]
     Active Substance: DURVALUMAB
     Dosage: 568 MILLIGRAM, UNK
  49. DURVALUMAB [Suspect]
     Active Substance: DURVALUMAB
     Dosage: 568 MILLIGRAM, UNK
  50. DURVALUMAB [Suspect]
     Active Substance: DURVALUMAB
     Dosage: 568 MILLIGRAM, UNK
  51. DURVALUMAB [Suspect]
     Active Substance: DURVALUMAB
     Dosage: 568 MILLIGRAM, UNK
  52. DURVALUMAB [Suspect]
     Active Substance: DURVALUMAB
     Dosage: 568 MILLIGRAM, UNK
  53. DURVALUMAB [Suspect]
     Active Substance: DURVALUMAB
     Dosage: 568 MILLIGRAM, UNK
  54. DURVALUMAB [Suspect]
     Active Substance: DURVALUMAB
     Dosage: 568 MILLIGRAM, UNK
  55. DURVALUMAB [Suspect]
     Active Substance: DURVALUMAB
     Dosage: 568 MILLIGRAM, UNK
  56. DURVALUMAB [Suspect]
     Active Substance: DURVALUMAB
     Dosage: 568 MILLIGRAM, UNK
  57. SOMAGO PLUS [Concomitant]
     Indication: Constipation
  58. CLOPIDOGREL BISULFATE [Concomitant]
     Active Substance: CLOPIDOGREL BISULFATE
     Indication: Myocardial ischaemia
  59. AMLODIPINE CAMSYLATE [Concomitant]
     Active Substance: AMLODIPINE CAMSYLATE
     Indication: Myocardial ischaemia
  60. Esomezol dr [Concomitant]
     Indication: Gastrointestinal disorder

REACTIONS (1)
  - Rheumatoid arthritis [Not Recovered/Not Resolved]
